FAERS Safety Report 6969930-0 (Version None)
Quarter: 2010Q3

REPORT INFORMATION
  Report Type: 
  Country: None (occurrence: None)
  Receive Date: 20100903
  Receipt Date: 20100825
  Transmission Date: 20110219
  Serious: Yes (Hospitalization)
  Sender: FDA-Public Use
  Company Number: 015056

PATIENT
  Sex: Male
  Weight: 91 kg

DRUGS (4)
  1. LACOSAMIDE [Suspect]
     Indication: CONVULSION
     Dosage: 100 MG BID ORAL, 150 MG, 100 MG IN THE MORNING AND 50 MG IN THE AFTERNOON.  ORAL
     Route: 048
     Dates: start: 20100601
  2. DEPAKOTE [Concomitant]
  3. TEGRETOL [Concomitant]
  4. ZONEGRAN [Concomitant]

REACTIONS (21)
  - BACK PAIN [None]
  - BRONCHITIS [None]
  - CANDIDIASIS [None]
  - CARPAL TUNNEL SYNDROME [None]
  - CHROMATURIA [None]
  - CONVULSION [None]
  - COUGH [None]
  - DIARRHOEA [None]
  - DIZZINESS [None]
  - DYSPHAGIA [None]
  - FALL [None]
  - HYPOPHAGIA [None]
  - NAUSEA [None]
  - NECK PAIN [None]
  - PAIN IN EXTREMITY [None]
  - PALPITATIONS [None]
  - RETCHING [None]
  - SENSORY DISTURBANCE [None]
  - SLEEP DISORDER [None]
  - SUICIDAL IDEATION [None]
  - WEIGHT DECREASED [None]
